FAERS Safety Report 4636320-5 (Version None)
Quarter: 2005Q2

REPORT INFORMATION
  Report Type: 
  Country: None (occurrence: None)
  Receive Date: 20050415
  Receipt Date: 20040929
  Transmission Date: 20051028
  Serious: Yes (Other)
  Sender: FDA-Public Use
  Company Number: US-BRISTOL-MYERS SQUIBB COMPANY-12718136

PATIENT
  Age: 70 Year
  Sex: Female
  Weight: 54 kg

DRUGS (8)
  1. CARBOPLATIN [Suspect]
     Indication: OVARIAN CANCER
     Dosage: START DATE:  25-AUG-2004
     Route: 042
     Dates: start: 20040916, end: 20040916
  2. ANZEMET [Concomitant]
     Indication: PREMEDICATION
  3. DECADRON [Concomitant]
     Indication: PREMEDICATION
  4. ARANESP [Concomitant]
     Route: 058
  5. NEURONTIN [Concomitant]
  6. B12 [Concomitant]
  7. PERCOCET [Concomitant]
  8. SENOKOT [Concomitant]

REACTIONS (2)
  - CHEST DISCOMFORT [None]
  - THROAT TIGHTNESS [None]
